FAERS Safety Report 9029624 (Version 1)
Quarter: 2013Q1

REPORT INFORMATION
  Report Type: Spontaneous
  Country: ES (occurrence: ES)
  Receive Date: 20130125
  Receipt Date: 20130125
  Transmission Date: 20140127
  Serious: Yes (Other)
  Sender: FDA-Public Use
  Company Number: ES-ELI_LILLY_AND_COMPANY-ES201301004607

PATIENT
  Sex: Female

DRUGS (1)
  1. FORSTEO [Suspect]
     Indication: FRACTURE DELAYED UNION
     Dosage: 20 UG, QD
     Route: 058
     Dates: start: 20120411, end: 201211

REACTIONS (2)
  - Medical device complication [Unknown]
  - Off label use [Unknown]
